FAERS Safety Report 5526439-9 (Version None)
Quarter: 2007Q4

REPORT INFORMATION
  Report Type: 
  Country: None (occurrence: None)
  Receive Date: 20071121
  Receipt Date: 20071121
  Transmission Date: 20080405
  Serious: Yes (Life-Threatening, Hospitalization)
  Sender: FDA-Public Use
  Company Number: None

PATIENT
  Sex: Male
  Weight: 79.7 kg

DRUGS (12)
  1. BUSULFAN [Suspect]
     Indication: ACUTE MYELOID LEUKAEMIA
     Dosage: 78MG QD
     Dates: start: 20070815, end: 20070818
  2. CYTOXAN [Suspect]
     Dosage: 4700 MG/QD
     Dates: start: 20070819, end: 20070820
  3. ATGAM [Suspect]
     Dosage: 2350 MG/ QD
     Dates: start: 20070820, end: 20070822
  4. ACYCLOVIR [Concomitant]
  5. DAPSONE [Concomitant]
  6. SOLU-MEDROL [Concomitant]
  7. ACTIGALL [Concomitant]
  8. NEORAL [Concomitant]
  9. BUDESONIDE [Concomitant]
  10. LISINOPRIL [Concomitant]
  11. CELLCEPT [Concomitant]
  12. LANOTIL [Concomitant]

REACTIONS (5)
  - AGITATION [None]
  - ANXIETY [None]
  - CONFUSIONAL STATE [None]
  - MOOD ALTERED [None]
  - NERVOUS SYSTEM DISORDER [None]
